FAERS Safety Report 10191959 (Version 1)
Quarter: 2014Q2

REPORT INFORMATION
  Report Type: Spontaneous
  Country: GB (occurrence: GB)
  Receive Date: 20140523
  Receipt Date: 20140523
  Transmission Date: 20141212
  Serious: Yes (Death, Hospitalization)
  Sender: FDA-Public Use
  Company Number: GB-WATSON-2014-10959

PATIENT
  Age: 41 Year
  Sex: Female

DRUGS (1)
  1. DEXAMETHASONE (UNKNOWN) [Suspect]
     Indication: MENINGIOMA
     Dosage: UNKNOWN
     Route: 048

REACTIONS (3)
  - Strongyloidiasis [Fatal]
  - Meningitis bacterial [Unknown]
  - Escherichia infection [Unknown]
